FAERS Safety Report 12471019 (Version 1)
Quarter: 2016Q2

REPORT INFORMATION
  Report Type: Spontaneous
  Country: US (occurrence: None)
  Receive Date: 20160615
  Receipt Date: 20160615
  Transmission Date: 20160815
  Serious: No
  Sender: FDA-Public Use
  Company Number: None

PATIENT
  Sex: Female

DRUGS (1)
  1. LEUKINE [Suspect]
     Active Substance: SARGRAMOSTIM
     Indication: ADRENAL GLAND CANCER
     Dosage: DAILY FOR 14 DAYS
     Route: 058
     Dates: start: 20160212

REACTIONS (4)
  - Peripheral swelling [None]
  - Hypersensitivity [None]
  - Swelling face [None]
  - Eye swelling [None]
